FAERS Safety Report 6821031-8 (Version None)
Quarter: 2010Q3

REPORT INFORMATION
  Report Type: 
  Country: None (occurrence: None)
  Receive Date: 20100707
  Receipt Date: 20071016
  Transmission Date: 20110219
  Serious: No
  Sender: FDA-Public Use
  Company Number: US-PFIZER INC-2007086702

PATIENT
  Sex: Female
  Weight: 86.363 kg

DRUGS (3)
  1. SERTRALINE [Suspect]
     Indication: DEPRESSION
     Dates: start: 20060101
  2. SYNTHROID [Concomitant]
     Indication: THYROID DISORDER
  3. NORETHISTERONE [Concomitant]

REACTIONS (1)
  - COELIAC DISEASE [None]
